FAERS Safety Report 18096967 (Version 1)
Quarter: 2020Q3

REPORT INFORMATION
  Report Type: Spontaneous
  Country: US (occurrence: US)
  Receive Date: 20200730
  Receipt Date: 20200730
  Transmission Date: 20201103
  Serious: No
  Sender: FDA-Public Use
  Company Number: None

PATIENT
  Age: 81 Year
  Sex: Female
  Weight: 55.9 kg

DRUGS (16)
  1. VEKLURY [Suspect]
     Active Substance: REMDESIVIR
     Indication: COVID-19
     Route: 042
  2. ACETAMINOPHEN. [Concomitant]
     Active Substance: ACETAMINOPHEN
     Dates: start: 20200722, end: 20200727
  3. ASPIRIN. [Concomitant]
     Active Substance: ASPIRIN
     Dates: start: 20200722, end: 20200727
  4. BENZONATATE. [Concomitant]
     Active Substance: BENZONATATE
     Dates: start: 20200722, end: 20200727
  5. MIRALAX [Concomitant]
     Active Substance: POLYETHYLENE GLYCOL 3350
     Dates: start: 20200722, end: 20200726
  6. ENOXAPARIN [Concomitant]
     Active Substance: ENOXAPARIN
     Dates: start: 20200722, end: 20200727
  7. IBUPROFEN. [Concomitant]
     Active Substance: IBUPROFEN
     Dates: start: 20200722, end: 20200727
  8. PANTOPRAZOLE [Concomitant]
     Active Substance: PANTOPRAZOLE
     Dates: start: 20200720, end: 20200727
  9. SIMVASTATIN. [Concomitant]
     Active Substance: SIMVASTATIN
     Dates: start: 20200722, end: 20200726
  10. GUAIFENESIN. [Concomitant]
     Active Substance: GUAIFENESIN
     Dates: start: 20200722, end: 20200727
  11. ALBUTEROL/IPRATROPIUM [Concomitant]
     Active Substance: ALBUTEROL\IPRATROPIUM
     Dates: start: 20200722, end: 20200727
  12. RESTASIS [Concomitant]
     Active Substance: CYCLOSPORINE
     Dates: start: 20200723, end: 20200727
  13. DEXAMETHASONE. [Concomitant]
     Active Substance: DEXAMETHASONE
     Dates: start: 20200722, end: 20200727
  14. LABETALOL [Concomitant]
     Active Substance: LABETALOL\LABETALOL HYDROCHLORIDE
     Dates: start: 20200722, end: 20200727
  15. FLUTICASONE PROPIONATE. [Concomitant]
     Active Substance: FLUTICASONE PROPIONATE
     Dates: start: 20200722, end: 20200727
  16. HYDRALAZINE [Concomitant]
     Active Substance: HYDRALAZINE HYDROCHLORIDE
     Dates: start: 20200722, end: 20200727

REACTIONS (3)
  - Dyspnoea [None]
  - Flushing [None]
  - Oxygen saturation decreased [None]

NARRATIVE: CASE EVENT DATE: 20200726
